FAERS Safety Report 11856118 (Version 1)
Quarter: 2015Q4

REPORT INFORMATION
  Report Type: Report from Study
  Country: US (occurrence: US)
  Receive Date: 20151221
  Receipt Date: 20151221
  Transmission Date: 20160305
  Serious: Yes (Other)
  Sender: FDA-Public Use
  Company Number: US-BAYER-2014-131424

PATIENT
  Age: 65 Year
  Sex: Male

DRUGS (4)
  1. NEXAVAR [Suspect]
     Active Substance: SORAFENIB
     Indication: HEPATIC CANCER
     Dosage: 200 MG, BID
     Route: 048
  2. NEXAVAR [Suspect]
     Active Substance: SORAFENIB
     Indication: HEPATIC CANCER
     Dosage: 400 MG, BID
     Route: 048
     Dates: start: 20140816
  3. NEXAVAR [Suspect]
     Active Substance: SORAFENIB
     Indication: HEPATIC CANCER
     Dosage: 200 MG, QD (IN MORNING)
     Route: 048
  4. NEXAVAR [Suspect]
     Active Substance: SORAFENIB
     Indication: HEPATIC CANCER
     Dosage: 400 MG, BID
     Route: 048
     Dates: start: 20140731

REACTIONS (13)
  - Blood pressure systolic increased [None]
  - Tension headache [None]
  - Head discomfort [None]
  - Erythema [None]
  - Decreased appetite [Not Recovered/Not Resolved]
  - Dry skin [None]
  - Skin disorder [None]
  - Peripheral swelling [Recovering/Resolving]
  - Fatigue [None]
  - Weight decreased [None]
  - Vomiting [None]
  - Nodule [None]
  - Pain in extremity [None]

NARRATIVE: CASE EVENT DATE: 20140828
